FAERS Safety Report 19551122 (Version 1)
Quarter: 2021Q3

REPORT INFORMATION
  Report Type: Spontaneous
  Country: PT (occurrence: PT)
  Receive Date: 20210714
  Receipt Date: 20210714
  Transmission Date: 20211014
  Serious: Yes (Death, Other)
  Sender: FDA-Public Use
  Company Number: PT-MYLANLABS-2021M1041461

PATIENT
  Age: 34 Year
  Sex: Male

DRUGS (4)
  1. ETOPOSIDE. [Suspect]
     Active Substance: ETOPOSIDE
     Indication: GERM CELL CANCER METASTATIC
  2. CISPLATIN. [Suspect]
     Active Substance: CISPLATIN
     Indication: GERM CELL CANCER METASTATIC
  3. DEXAMETHASONE. [Suspect]
     Active Substance: DEXAMETHASONE
     Indication: GERM CELL CANCER METASTATIC
     Dosage: (10 MG BOLUS OF IV DEXAMETHASONE, FOLLOWED BY 5 MG, 2 TIMES A DAY, PER OS)
     Route: 040
  4. BLEOMYCIN [Suspect]
     Active Substance: BLEOMYCIN SULFATE
     Indication: GERM CELL CANCER METASTATIC
     Dosage: UNK

REACTIONS (3)
  - Death [Fatal]
  - Metastases to central nervous system [Unknown]
  - Disease progression [Unknown]
